FAERS Safety Report 7491399-0 (Version None)
Quarter: 2011Q2

REPORT INFORMATION
  Report Type: 
  Country: None (occurrence: None)
  Receive Date: 20110519
  Receipt Date: 20110505
  Transmission Date: 20111010
  Serious: Yes (Other)
  Sender: FDA-Public Use
  Company Number: PHHY2011TR35832

PATIENT
  Sex: Female

DRUGS (1)
  1. ZOLEDRONIC ACID [Suspect]
     Indication: OSTEOPOROSIS
     Dosage: 5 MG/100 ML
     Route: 042
     Dates: start: 20110426

REACTIONS (6)
  - HYPERTENSION [None]
  - CONVULSION [None]
  - URINARY INCONTINENCE [None]
  - BONE PAIN [None]
  - BACK PAIN [None]
  - DIARRHOEA [None]
